FAERS Safety Report 25440255 (Version 2)
Quarter: 2025Q4

REPORT INFORMATION
  Report Type: Spontaneous
  Country: CA (occurrence: CA)
  Receive Date: 20250616
  Receipt Date: 20251122
  Transmission Date: 20260117
  Serious: Yes (Hospitalization, Other)
  Sender: BOEHRINGER INGELHEIM
  Company Number: CA-BoehringerIngelheim-2025-BI-076647

PATIENT
  Age: 78 Year
  Sex: Female

DRUGS (57)
  1. PRAMIPEXOLE DIHYDROCHLORIDE [Suspect]
     Active Substance: PRAMIPEXOLE DIHYDROCHLORIDE
     Indication: Restless legs syndrome
  2. AMLODIPINE BESYLATE [Suspect]
     Active Substance: AMLODIPINE BESYLATE
     Indication: Hypertension
  3. LABETALOL [Suspect]
     Active Substance: LABETALOL
     Indication: Hypertension
  4. LABETALOL [Suspect]
     Active Substance: LABETALOL
     Dosage: 1 EVERY 24 HOURS
  5. LABETALOL [Suspect]
     Active Substance: LABETALOL
  6. LABETALOL [Suspect]
     Active Substance: LABETALOL
  7. VALSARTAN [Suspect]
     Active Substance: VALSARTAN
     Indication: Hypertension
  8. FUROSEMIDE [Suspect]
     Active Substance: FUROSEMIDE
     Indication: Oedema peripheral
  9. GLICLAZIDE [Suspect]
     Active Substance: GLICLAZIDE
     Indication: Diabetes mellitus
  10. GLICLAZIDE [Suspect]
     Active Substance: GLICLAZIDE
  11. ASPIRIN [Suspect]
     Active Substance: ASPIRIN
     Indication: Cerebrovascular accident
  12. ASPIRIN [Suspect]
     Active Substance: ASPIRIN
     Indication: Anticoagulant therapy
  13. ASPIRIN [Suspect]
     Active Substance: ASPIRIN
  14. ALLOPURINOL [Suspect]
     Active Substance: ALLOPURINOL
     Indication: Prophylaxis
  15. ALLOPURINOL [Suspect]
     Active Substance: ALLOPURINOL
     Dosage: 1 EVERY 1 DAYS
  16. ALLOPURINOL [Suspect]
     Active Substance: ALLOPURINOL
  17. CALCIUM CARBONATE [Suspect]
     Active Substance: CALCIUM CARBONATE
     Indication: Osteoporosis
     Dosage: 1
  18. FLUTICASONE [Suspect]
     Active Substance: FLUTICASONE
     Indication: Wheezing
     Dosage: 2 EVERY 12 HOUR
  19. ALBUTEROL [Suspect]
     Active Substance: ALBUTEROL
     Indication: Product used for unknown indication
  20. APIXABAN [Suspect]
     Active Substance: APIXABAN
     Indication: Anticoagulant therapy
     Dosage: UNIT DOSE: 2
  21. TRAMADOL [Suspect]
     Active Substance: TRAMADOL
     Indication: Pain
  22. ACEBUTOLOL HYDROCHLORIDE [Suspect]
     Active Substance: ACEBUTOLOL HYDROCHLORIDE
     Indication: Hypertension
  23. CALCIUM GLUCONATE [Suspect]
     Active Substance: CALCIUM GLUCONATE
     Indication: Osteoporosis
  24. ZOCOR [Suspect]
     Active Substance: SIMVASTATIN
     Indication: Cerebrovascular accident
  25. METHOCARBAMOL [Suspect]
     Active Substance: METHOCARBAMOL
     Indication: Pain
  26. METHOCARBAMOL [Suspect]
     Active Substance: METHOCARBAMOL
     Indication: Hypertension
  27. CALCIUM [Suspect]
     Active Substance: CALCIUM
     Indication: Product used for unknown indication
     Dosage: 1 DOSAGE
  28. LEVOTHYROXINE SODIUM [Suspect]
     Active Substance: LEVOTHYROXINE SODIUM
     Indication: Hypothyroidism
  29. THEO-DUR [Suspect]
     Active Substance: THEOPHYLLINE ANHYDROUS
     Indication: Hypertension
     Dosage: TABLET (EXTENDED-RELEASE)
  30. BETAMETHASONE VALERATE [Suspect]
     Active Substance: BETAMETHASONE VALERATE
     Indication: Psoriasis
  31. CYANOCOBALAMIN [Suspect]
     Active Substance: CYANOCOBALAMIN
     Indication: Product used for unknown indication
  32. JANUVIA [Suspect]
     Active Substance: SITAGLIPTIN PHOSPHATE
     Indication: Diabetes mellitus
  33. HYDRALAZINE [Suspect]
     Active Substance: HYDRALAZINE HYDROCHLORIDE
     Indication: Hypertension
  34. METFORMIN [Suspect]
     Active Substance: METFORMIN HYDROCHLORIDE
     Indication: Diabetes mellitus
  35. CLOPIDOGREL BISULFATE [Suspect]
     Active Substance: CLOPIDOGREL BISULFATE
     Indication: Anticoagulant therapy
  36. ALISKIREN [Suspect]
     Active Substance: ALISKIREN
     Indication: Hypertension
  37. BETAMETHASONE [Suspect]
     Active Substance: BETAMETHASONE
     Indication: Psoriasis
  38. ALISKIREN HEMIFUMARATE [Suspect]
     Active Substance: ALISKIREN HEMIFUMARATE
     Indication: Hypertension
  39. BETAMETHASONE DIPROPIONATE\CALCIPOTRIENE [Suspect]
     Active Substance: BETAMETHASONE DIPROPIONATE\CALCIPOTRIENE
     Indication: Psoriasis
  40. BETAMETHASONE\SALICYLIC ACID [Suspect]
     Active Substance: BETAMETHASONE\SALICYLIC ACID
     Indication: Psoriasis
  41. PANTOPRAZOLE [Suspect]
     Active Substance: PANTOPRAZOLE
     Indication: Product used for unknown indication
  42. ACEBUTOLOL [Suspect]
     Active Substance: ACEBUTOLOL
     Indication: Hypertension
  43. TRAMADOL HYDROCHLORIDE [Suspect]
     Active Substance: TRAMADOL HYDROCHLORIDE
     Indication: Pain
  44. LABETALOL HYDROCHLORIDE [Suspect]
     Active Substance: LABETALOL HYDROCHLORIDE
     Indication: Hypertension
  45. LABETALOL HYDROCHLORIDE [Suspect]
     Active Substance: LABETALOL HYDROCHLORIDE
     Dosage: 2 EVERY 1 DAYS
  46. FLUTICASONE PROPIONATE [Suspect]
     Active Substance: FLUTICASONE PROPIONATE
     Indication: Wheezing
     Dosage: UNIT DOSE: 2
  47. FLUTICASONE PROPIONATE [Suspect]
     Active Substance: FLUTICASONE PROPIONATE
     Indication: Cough
  48. SITAGLIPTIN [Suspect]
     Active Substance: SITAGLIPTIN
     Indication: Diabetes mellitus
  49. RANITIDINE [Suspect]
     Active Substance: RANITIDINE
     Indication: Dyspepsia
  50. ACETAMINOPHEN [Concomitant]
     Active Substance: ACETAMINOPHEN
     Indication: Pain
  51. ERGOCALCIFEROL [Concomitant]
     Active Substance: ERGOCALCIFEROL
     Indication: Osteoporosis
     Dosage: UNIT DOSE: 1
  52. RISEDRONATE SODIUM [Concomitant]
     Active Substance: RISEDRONATE SODIUM
     Indication: Osteoporosis
  53. CALCIPOTRIENE [Concomitant]
     Active Substance: CALCIPOTRIENE
     Indication: Psoriasis
  54. HERBALS [Concomitant]
     Active Substance: HERBALS
     Indication: Product used for unknown indication
  55. HERBALS [Concomitant]
     Active Substance: HERBALS
     Indication: Constipation
  56. HERBALS\PLANTAGO OVATA LEAF [Concomitant]
     Active Substance: HERBALS\PLANTAGO OVATA LEAF
     Indication: Constipation
  57. ACETAMINOPHEN\METHOCARBAMOL [Concomitant]
     Active Substance: ACETAMINOPHEN\METHOCARBAMOL
     Indication: Back pain

REACTIONS (18)
  - Diabetes mellitus inadequate control [Unknown]
  - Multiple drug therapy [Unknown]
  - Oedema peripheral [Unknown]
  - Exercise tolerance decreased [Unknown]
  - Blood pressure inadequately controlled [Unknown]
  - Treatment noncompliance [Unknown]
  - Medication error [Unknown]
  - Product use issue [Unknown]
  - Contusion [Unknown]
  - Mobility decreased [Unknown]
  - Hypertension [Unknown]
  - Peripheral swelling [Unknown]
  - Cognitive disorder [Unknown]
  - Depressed mood [Unknown]
  - Amnesia [Unknown]
  - Abdominal discomfort [Unknown]
  - Drug ineffective [Unknown]
  - Off label use [Unknown]
